FAERS Safety Report 19884862 (Version 1)
Quarter: 2021Q3

REPORT INFORMATION
  Report Type: Spontaneous
  Country: US (occurrence: US)
  Receive Date: 20210927
  Receipt Date: 20210927
  Transmission Date: 20211014
  Serious: Yes (Disabling)
  Sender: FDA-Public Use
  Company Number: None

PATIENT
  Age: 25 Year
  Sex: Female
  Weight: 58.5 kg

DRUGS (2)
  1. DOTAREM [Suspect]
     Active Substance: GADOTERATE MEGLUMINE
     Indication: MAGNETIC RESONANCE IMAGING
     Dosage: ?          OTHER FREQUENCY:ONCE FOR MRI;?
     Route: 042
     Dates: start: 20210917, end: 20210917
  2. DOTAREM [Suspect]
     Active Substance: GADOTERATE MEGLUMINE
     Indication: SCAN WITH CONTRAST
     Dosage: ?          OTHER FREQUENCY:ONCE FOR MRI;?
     Route: 042
     Dates: start: 20210917, end: 20210917

REACTIONS (32)
  - Dose calculation error [None]
  - Incorrect dose administered [None]
  - Psychotic disorder [None]
  - Feeling of despair [None]
  - Headache [None]
  - Overdose [None]
  - Tremor [None]
  - Neuralgia [None]
  - Renal impairment [None]
  - Near death experience [None]
  - Bone disorder [None]
  - Diabetes insipidus [None]
  - Anuria [None]
  - Myalgia [None]
  - Illness [None]
  - Palpitations [None]
  - Neck pain [None]
  - Pleuritic pain [None]
  - Throat tightness [None]
  - Bone pain [None]
  - Pain in extremity [None]
  - Bedridden [None]
  - Pain in jaw [None]
  - Seizure [None]
  - Muscle spasms [None]
  - Arthralgia [None]
  - Gait inability [None]
  - Pain [None]
  - Hypohidrosis [None]
  - Joint instability [None]
  - Chest pain [None]
  - Musculoskeletal chest pain [None]

NARRATIVE: CASE EVENT DATE: 20210917
